FAERS Safety Report 22071853 (Version 1)
Quarter: 2023Q1

REPORT INFORMATION
  Report Type: Spontaneous
  Country: US (occurrence: US)
  Receive Date: 20230307
  Receipt Date: 20230307
  Transmission Date: 20230417
  Serious: Yes (Other)
  Sender: FDA-Public Use
  Company Number: US-BIOGEN-2023BI01191654

PATIENT
  Age: 39 Year
  Sex: Female

DRUGS (1)
  1. TECFIDERA [Suspect]
     Active Substance: DIMETHYL FUMARATE
     Indication: Multiple sclerosis
     Route: 050

REACTIONS (5)
  - Anaphylactic reaction [Unknown]
  - Autonomic nervous system imbalance [Unknown]
  - Back pain [Unknown]
  - Product dose omission issue [Unknown]
  - Vomiting [Unknown]

NARRATIVE: CASE EVENT DATE: 20230201
